FAERS Safety Report 9506739 (Version 1)
Quarter: 2013Q3

REPORT INFORMATION
  Report Type: Spontaneous
  Country: US (occurrence: US)
  Receive Date: 20130908
  Receipt Date: 20130908
  Transmission Date: 20140515
  Serious: Yes (Other)
  Sender: FDA-Public Use
  Company Number: US-JNJFOC-20130815585

PATIENT
  Age: 11 Month
  Sex: Female
  Weight: 6.35 kg

DRUGS (1)
  1. DESITIN MAXIMUM STRENGTH ORIGINAL PASTE [Suspect]
     Indication: DERMATITIS DIAPER
     Dosage: TIP OF ADULT FINGER
     Route: 061
     Dates: start: 20130820, end: 20130821

REACTIONS (1)
  - Application site burn [Recovering/Resolving]
